FAERS Safety Report 19476822 (Version 2)
Quarter: 2021Q4

REPORT INFORMATION
  Report Type: Spontaneous
  Country: US (occurrence: US)
  Receive Date: 20210630
  Receipt Date: 20211104
  Transmission Date: 20220303
  Serious: No
  Sender: FDA-Public Use
  Company Number: US-PFIZER INC-2021376982

PATIENT
  Age: 69 Year
  Sex: Male

DRUGS (7)
  1. LYRICA [Suspect]
     Active Substance: PREGABALIN
     Indication: Pain
     Dosage: 200
  2. LYRICA [Suspect]
     Active Substance: PREGABALIN
     Indication: Lumbar radiculopathy
     Dosage: 50 MG, 2X/DAY
     Route: 048
  3. LYRICA [Suspect]
     Active Substance: PREGABALIN
     Indication: Radicular pain
  4. LYRICA [Suspect]
     Active Substance: PREGABALIN
     Indication: Back pain
  5. LYRICA [Suspect]
     Active Substance: PREGABALIN
     Indication: Sciatica
  6. LYRICA [Suspect]
     Active Substance: PREGABALIN
     Indication: Intervertebral disc disorder
  7. LYRICA [Suspect]
     Active Substance: PREGABALIN
     Indication: Cervical radiculopathy

REACTIONS (1)
  - Drug ineffective [Unknown]
